FAERS Safety Report 13324342 (Version 1)
Quarter: 2017Q1

REPORT INFORMATION
  Report Type: Report from Study
  Country: US (occurrence: US)
  Receive Date: 20170310
  Receipt Date: 20170310
  Transmission Date: 20170428
  Serious: Yes (Hospitalization, Disabling, Other)
  Sender: FDA-Public Use
  Company Number: US-REGENERON PHARMACEUTICALS, INC.-2017-12850

PATIENT

DRUGS (18)
  1. EYLEA [Suspect]
     Active Substance: AFLIBERCEPT
     Dosage: FOURTH INJECTION, LEFT EYE
     Route: 031
     Dates: start: 20170216, end: 20170216
  2. LISINOPRIL. [Concomitant]
     Active Substance: LISINOPRIL
     Indication: HYPERTENSION
  3. EYLEA [Suspect]
     Active Substance: AFLIBERCEPT
     Indication: DIABETIC RETINAL OEDEMA
     Dosage: NOV OR DEC 2016, LEFT EYE
  4. EYLEA [Suspect]
     Active Substance: AFLIBERCEPT
     Dosage: 3RD ROUND OF INJECTIONS IN JANUARY 2017
     Route: 031
  5. GABAPENTIN. [Concomitant]
     Active Substance: GABAPENTIN
     Indication: DIABETIC NEPHROPATHY
  6. HYDROCHLOORTHIAZIDE [Concomitant]
     Active Substance: HYDROCHLOROTHIAZIDE
     Indication: HYPERTENSION
  7. CRESTOR [Concomitant]
     Active Substance: ROSUVASTATIN CALCIUM
     Indication: HYPERCHOLESTEROLAEMIA
  8. BACLOFEN. [Concomitant]
     Active Substance: BACLOFEN
     Indication: DIABETIC NEPHROPATHY
  9. ESOMEPRAZOLE [Concomitant]
     Active Substance: ESOMEPRAZOLE
     Indication: GASTROOESOPHAGEAL REFLUX DISEASE
  10. AMLODIPINE [Concomitant]
     Active Substance: AMLODIPINE BESYLATE
     Indication: BLOOD PRESSURE INCREASED
  11. EYLEA [Suspect]
     Active Substance: AFLIBERCEPT
     Dosage: 2ND ROUND OF SHOTS IN BOTH EYES SOMETIME BEFORE CHRISTMAS 2016
     Route: 031
  12. HUMALOG [Concomitant]
     Active Substance: INSULIN LISPRO
     Indication: DIABETES MELLITUS
  13. INDOMETACIN [Concomitant]
     Active Substance: INDOMETHACIN
     Indication: DIABETES MELLITUS
  14. CYMBALTA [Concomitant]
     Active Substance: DULOXETINE HYDROCHLORIDE
     Indication: DEPRESSION
  15. METFORMIN [Concomitant]
     Active Substance: METFORMIN HYDROCHLORIDE
     Indication: DIABETES MELLITUS
  16. EYLEA [Suspect]
     Active Substance: AFLIBERCEPT
     Dosage: WEEK LATER, RIGHT EYE
     Route: 031
  17. CYMBALTA [Concomitant]
     Active Substance: DULOXETINE HYDROCHLORIDE
     Indication: PAIN
  18. FUROSEMIDE. [Concomitant]
     Active Substance: FUROSEMIDE
     Indication: HYPERTENSION

REACTIONS (9)
  - Vision blurred [Unknown]
  - Pneumothorax [Unknown]
  - Blindness unilateral [Unknown]
  - Eye infection [Not Recovered/Not Resolved]
  - Visual acuity reduced [Unknown]
  - Vitreous floaters [Unknown]
  - Headache [Not Recovered/Not Resolved]
  - Eye haemorrhage [Unknown]
  - Weight decreased [Unknown]

NARRATIVE: CASE EVENT DATE: 201702
